FAERS Safety Report 9529218 (Version 1)
Quarter: 2013Q2

REPORT INFORMATION
  Report Type: Spontaneous
  Country: US (occurrence: None)
  Receive Date: 20130401
  Receipt Date: 20130401
  Transmission Date: 20140414
  Serious: Yes (Other)
  Sender: FDA-Public Use
  Company Number: PHEH2012US008082

PATIENT
  Age: 83 Year
  Sex: Male
  Weight: 185 kg

DRUGS (18)
  1. EXELON PATCH [Suspect]
     Indication: AMNESIA
     Dosage: EVERY 24HRS, TRANSDERMAL
     Route: 062
  2. COLACE [Concomitant]
  3. COUMADIN (WARFARIN SODIUM) [Concomitant]
  4. DIGOXIN (DIGOXIN) [Concomitant]
  5. IRON (IRON) [Concomitant]
  6. LOVAZA (OMEGA-3 ACID ETHYL ESTERS) [Concomitant]
  7. MAGNESIUM OXIDE (MAGNESIUM OXIDE) [Concomitant]
  8. REMERON (MIRTAZAPINE) [Concomitant]
  9. RISPERDAL (RISPERIDONE) [Concomitant]
  10. SIMCOR (NICOTINIC ACID, SIMVASTATIN) [Concomitant]
  11. TIMOLOL (TIMOLOL) (NONE) [Concomitant]
  12. TOVIAZ (FESOTERODINE FUNARATE) [Concomitant]
  13. TRILIPIX (CHOLINE FENOFIBRATE) [Concomitant]
  14. TYLENOL (PARACETAMOL) [Concomitant]
  15. ULTRAM (TRAMADOL HYDROCHLORIDE) [Concomitant]
  16. ZOLOFT (SERTRALINE HYDORCHLORIDE) [Concomitant]
  17. KENALOG [Concomitant]
  18. TESTOSTERONE (TESTOSTERONE) [Concomitant]

REACTIONS (5)
  - Application site dermatitis [None]
  - Application site erythema [None]
  - Application site vesicles [None]
  - Application site pruritus [None]
  - Application site pain [None]
